FAERS Safety Report 4712600-X (Version None)
Quarter: 2005Q3

REPORT INFORMATION
  Report Type: 
  Country: None (occurrence: None)
  Receive Date: 20050712
  Receipt Date: 20050413
  Transmission Date: 20060218
  Serious: Yes (Hospitalization, Disabling)
  Sender: FDA-Public Use
  Company Number: US-MERCK-0504USA02194

PATIENT
  Age: 57 Year
  Sex: Male
  Weight: 64 kg

DRUGS (13)
  1. VIOXX [Suspect]
     Indication: BACK PAIN
     Route: 048
     Dates: start: 20021201, end: 20040301
  2. VIOXX [Suspect]
     Route: 048
     Dates: start: 20021201, end: 20040301
  3. NOVOLOG [Concomitant]
     Indication: DIABETES MELLITUS
     Route: 065
  4. GLUCOTROL [Concomitant]
     Indication: DIABETES MELLITUS
     Route: 065
  5. GLYBURIDE [Concomitant]
     Indication: DIABETES MELLITUS
     Route: 065
  6. HUMULIN [Concomitant]
     Route: 065
  7. CRESTOR [Concomitant]
     Indication: BLOOD CHOLESTEROL INCREASED
     Route: 065
  8. AVANDAMET [Concomitant]
     Route: 065
  9. VIAGRA [Concomitant]
     Indication: ERECTILE DYSFUNCTION
     Route: 065
  10. HYDROCODONE BITARTRATE + ACETAMINOPHEN [Concomitant]
     Route: 065
     Dates: start: 20030501
  11. LORATADINE [Concomitant]
     Indication: HYPERSENSITIVITY
     Route: 065
  12. METFORMIN [Concomitant]
     Indication: DIABETES MELLITUS
     Route: 065
  13. VASOTEC [Concomitant]
     Route: 048

REACTIONS (4)
  - CEREBROVASCULAR ACCIDENT [None]
  - INTERVERTEBRAL DISC PROTRUSION [None]
  - LIMB INJURY [None]
  - PAIN [None]
